FAERS Safety Report 5257043-8 (Version None)
Quarter: 2007Q1

REPORT INFORMATION
  Report Type: 
  Country: None (occurrence: None)
  Receive Date: 20070307
  Receipt Date: 20070301
  Transmission Date: 20070707
  Serious: Yes (Death)
  Sender: FDA-Public Use
  Company Number: PHBS2007JP03652

PATIENT
  Age: 33 Year
  Sex: Female
  Weight: 90 kg

DRUGS (1)
  1. TEGRETOL [Suspect]

REACTIONS (2)
  - MULTIPLE DRUG OVERDOSE [None]
  - SHOCK [None]
